FAERS Safety Report 5495933-1 (Version None)
Quarter: 2007Q4

REPORT INFORMATION
  Report Type: 
  Country: None (occurrence: None)
  Receive Date: 20071025
  Receipt Date: 20061227
  Transmission Date: 20080405
  Serious: No
  Sender: FDA-Public Use
  Company Number: A0632639A

PATIENT
  Age: 41 Year
  Sex: Female

DRUGS (4)
  1. ADVAIR DISKUS 100/50 [Suspect]
     Indication: ASTHMA
     Route: 055
     Dates: end: 20061220
  2. SYNTHROID [Concomitant]
  3. VENTOLIN [Concomitant]
  4. ALLEGRA [Concomitant]

REACTIONS (1)
  - ARTHRALGIA [None]
